FAERS Safety Report 24351691 (Version 1)
Quarter: 2024Q3

REPORT INFORMATION
  Report Type: Spontaneous
  Country: US (occurrence: None)
  Receive Date: 20240920
  Receipt Date: 20240920
  Transmission Date: 20241016
  Serious: Yes (Hospitalization)
  Sender: Public
  Company Number: None

PATIENT
  Sex: Female

DRUGS (4)
  1. SILDENAFIL CITRATE [Suspect]
     Active Substance: SILDENAFIL CITRATE
     Indication: Pulmonary arterial hypertension
     Dosage: 20MG TID PO
     Route: 048
     Dates: start: 202302
  2. WINREVAIR [Suspect]
     Active Substance: SOTATERCEPT-CSRK
     Dosage: 0.7 M,L EVERY 3 WEEKS SQ?
     Route: 058
  3. OPSUMIT [Suspect]
     Active Substance: MACITENTAN
  4. LASIX [Suspect]
     Active Substance: FUROSEMIDE

REACTIONS (5)
  - Coma [None]
  - Blister [None]
  - Septic shock [None]
  - Pneumonia aspiration [None]
  - Clostridium difficile infection [None]
